FAERS Safety Report 6923963-9 (Version None)
Quarter: 2010Q3

REPORT INFORMATION
  Report Type: 
  Country: None (occurrence: None)
  Receive Date: 20100813
  Receipt Date: 20100805
  Transmission Date: 20110219
  Serious: Yes (Hospitalization, Other)
  Sender: FDA-Public Use
  Company Number: DE-ELI_LILLY_AND_COMPANY-DE201008002566

PATIENT
  Sex: Male

DRUGS (9)
  1. ARICLAIM [Suspect]
     Indication: DIABETIC NEUROPATHY
     Dosage: 60 MG, UNKNOWN
     Route: 048
     Dates: start: 20100729, end: 20100802
  2. DELIX [Concomitant]
     Dosage: UNK, UNKNOWN
     Route: 065
  3. METOPROLOL TARTRATE [Concomitant]
     Dosage: UNK, UNKNOWN
     Route: 065
  4. SIMVASTATIN [Concomitant]
     Dosage: UNK, UNKNOWN
     Route: 065
  5. METFORMIN HCL [Concomitant]
     Dosage: UNK, UNKNOWN
     Route: 065
  6. AMARYL [Concomitant]
     Dosage: UNK, UNKNOWN
     Route: 065
  7. OPIPRAMOL [Concomitant]
     Dosage: UNK, UNKNOWN
     Route: 065
  8. FALITHROM [Concomitant]
     Dosage: UNK, UNKNOWN
     Route: 065
  9. TRAMADOL HYDROCHLORIDE [Concomitant]
     Dosage: UNK, UNKNOWN
     Route: 065

REACTIONS (5)
  - BLOOD PRESSURE DECREASED [None]
  - CHEST PAIN [None]
  - COLD SWEAT [None]
  - NAUSEA [None]
  - PALLOR [None]
